FAERS Safety Report 18470666 (Version 1)
Quarter: 2020Q4

REPORT INFORMATION
  Report Type: Report from Study
  Country: US (occurrence: US)
  Receive Date: 20201105
  Receipt Date: 20201105
  Transmission Date: 20210114
  Serious: No
  Sender: FDA-Public Use
  Company Number: US-INCYTE CORPORATION-2020IN009585

PATIENT

DRUGS (2)
  1. JAKAFI [Suspect]
     Active Substance: RUXOLITINIB
     Dosage: 20 MILLIGRAM, QD
     Route: 065
  2. JAKAFI [Suspect]
     Active Substance: RUXOLITINIB
     Indication: POLYCYTHAEMIA VERA
     Dosage: 15 MILLIGRAM, BID
     Route: 065

REACTIONS (6)
  - Haematotoxicity [Unknown]
  - Toxicity to various agents [Unknown]
  - Disturbance in attention [Unknown]
  - White blood cell count abnormal [Unknown]
  - Haematocrit abnormal [Unknown]
  - Platelet count increased [Unknown]
